FAERS Safety Report 6567863-5 (Version None)
Quarter: 2010Q1

REPORT INFORMATION
  Report Type: 
  Country: None (occurrence: None)
  Receive Date: 20100203
  Receipt Date: 20100122
  Transmission Date: 20100710
  Serious: Yes (Other)
  Sender: FDA-Public Use
  Company Number: PHHY2009GB34541

PATIENT
  Sex: Male

DRUGS (1)
  1. CLOZARIL [Suspect]
     Indication: SCHIZOPHRENIA
     Dosage: UNK
     Dates: start: 19930331

REACTIONS (4)
  - DIABETES MELLITUS [None]
  - FUNGAL SKIN INFECTION [None]
  - PSORIASIS [None]
  - RHINITIS [None]
